FAERS Safety Report 6247953-7 (Version None)
Quarter: 2009Q2

REPORT INFORMATION
  Report Type: 
  Country: None (occurrence: None)
  Receive Date: 20090626
  Receipt Date: 20090626
  Transmission Date: 20091009
  Serious: Yes (Other)
  Sender: FDA-Public Use
  Company Number: JP-B.I. PHARMACEUTICALS,INC./RIDGEFIELD-2009-BP-07667NB

PATIENT
  Age: 17 Year
  Sex: Female

DRUGS (4)
  1. MICARDIS [Suspect]
     Dosage: 14 ANZ
     Route: 048
  2. ZITHROMAX [Suspect]
     Dosage: 6 ANZ
     Route: 048
  3. NAUZELIN [Suspect]
     Dosage: 20 ANZ
     Route: 048
  4. COLDRIN [Suspect]
     Dosage: 8 ANZ
     Route: 048

REACTIONS (3)
  - DEPRESSED LEVEL OF CONSCIOUSNESS [None]
  - DRUG ABUSE [None]
  - SUICIDE ATTEMPT [None]
